FAERS Safety Report 11424280 (Version 1)
Quarter: 2015Q3

REPORT INFORMATION
  Report Type: Report from Study
  Country: US (occurrence: US)
  Receive Date: 20150827
  Receipt Date: 20150827
  Transmission Date: 20151125
  Serious: Yes (Life-Threatening, Hospitalization, Other)
  Sender: FDA-Public Use
  Company Number: US-UNITED THERAPEUTICS LTD. - LX-UK-UTC-030531

PATIENT
  Age: 39 Year
  Sex: Female
  Weight: 90.5 kg

DRUGS (13)
  1. UT-15C SR [Suspect]
     Active Substance: TREPROSTINIL DIOLAMINE
     Indication: PULMONARY ARTERIAL HYPERTENSION
     Route: 048
     Dates: start: 20080312
  2. AMBRISENTAN [Concomitant]
     Active Substance: AMBRISENTAN
     Indication: PULMONARY HYPERTENSION
     Route: 048
     Dates: start: 20051004
  3. ESOMEPRAZOLE [Concomitant]
     Active Substance: ESOMEPRAZOLE
     Indication: GASTROOESOPHAGEAL REFLUX DISEASE
     Route: 048
     Dates: start: 20060619
  4. FUROSEMIDE. [Concomitant]
     Active Substance: FUROSEMIDE
     Indication: DIURETIC THERAPY
     Route: 048
     Dates: start: 20051129
  5. LOSARTAN. [Concomitant]
     Active Substance: LOSARTAN
     Indication: HYPERTENSION
     Route: 048
     Dates: start: 201206
  6. COUMADIN [Concomitant]
     Active Substance: WARFARIN SODIUM
     Indication: PROPHYLAXIS
     Route: 048
     Dates: start: 20071107
  7. POTASSIUM [Concomitant]
     Active Substance: POTASSIUM
     Indication: SUPPLEMENTATION THERAPY
     Route: 048
     Dates: start: 20071107
  8. METFORMIN [Concomitant]
     Active Substance: METFORMIN HYDROCHLORIDE
     Indication: DIABETES MELLITUS
     Route: 048
     Dates: start: 20110321
  9. UT-15C SR [Suspect]
     Active Substance: TREPROSTINIL DIOLAMINE
     Route: 048
     Dates: start: 20130317, end: 20130317
  10. PREDNISONE. [Concomitant]
     Active Substance: PREDNISONE
     Indication: HAEMOLYTIC ANAEMIA
     Route: 048
     Dates: start: 2009
  11. SPIRONOLACTONE. [Concomitant]
     Active Substance: SPIRONOLACTONE
     Indication: DIURETIC THERAPY
     Route: 048
     Dates: start: 20090324
  12. UT-15C SR [Suspect]
     Active Substance: TREPROSTINIL DIOLAMINE
     Route: 048
     Dates: start: 20130320
  13. BETAPACE [Concomitant]
     Active Substance: SOTALOL HYDROCHLORIDE
     Indication: ARRHYTHMIA
     Route: 048
     Dates: start: 20051129

REACTIONS (6)
  - Decreased appetite [None]
  - Right ventricular failure [Recovered/Resolved]
  - Hypotension [Recovered/Resolved]
  - Tricuspid valve incompetence [None]
  - Cardiogenic shock [Recovered/Resolved]
  - Treatment noncompliance [None]

NARRATIVE: CASE EVENT DATE: 20130315
